FAERS Safety Report 7657480-8 (Version None)
Quarter: 2011Q3

REPORT INFORMATION
  Report Type: 
  Country: None (occurrence: None)
  Receive Date: 20110804
  Receipt Date: 20110801
  Transmission Date: 20111222
  Serious: Yes (Other)
  Sender: FDA-Public Use
  Company Number: BR-PFIZER INC-2011175691

PATIENT
  Age: 47 Year
  Sex: Female
  Weight: 60 kg

DRUGS (3)
  1. LYRICA [Suspect]
     Dosage: 150 MG, 1X/DAY
     Route: 048
     Dates: start: 20110501
  2. LYRICA [Suspect]
     Indication: FIBROMYALGIA
     Dosage: 75 MG
     Route: 048
     Dates: start: 20101001
  3. ALENDRONATE SODIUM [Concomitant]
     Indication: OSTEOPOROSIS
     Dosage: UNK

REACTIONS (4)
  - DYSPNOEA [None]
  - HYPOTHYROIDISM [None]
  - MUSCLE FATIGUE [None]
  - TACHYCARDIA [None]
